FAERS Safety Report 7410712-3 (Version None)
Quarter: 2011Q1

REPORT INFORMATION
  Report Type: 
  Country: None (occurrence: None)
  Receive Date: 20110302
  Receipt Date: 20101221
  Transmission Date: 20110831
  Serious: No
  Sender: FDA-Public Use
  Company Number: 014020

PATIENT
  Sex: Male
  Weight: 107.5 kg

DRUGS (6)
  1. CALTRATE /00108001/ [Concomitant]
  2. AMITRIPTYLINE HCL [Concomitant]
  3. CIMZIA [Suspect]
     Indication: CROHN'S DISEASE
     Dosage: (400 MG 1X/4 WEEKS SUBCUTANEOUS), (200 MG 1X/2 WEEKS SUBCUTANEOUS), (SUBCUTANEOUS)
     Route: 058
     Dates: start: 20100101, end: 20101201
  4. CIMZIA [Suspect]
     Indication: CROHN'S DISEASE
     Dosage: (400 MG 1X/4 WEEKS SUBCUTANEOUS), (200 MG 1X/2 WEEKS SUBCUTANEOUS), (SUBCUTANEOUS)
     Route: 058
     Dates: start: 20091220
  5. PREDNISONE [Concomitant]
  6. GABAPENTIN [Concomitant]

REACTIONS (6)
  - FEELING ABNORMAL [None]
  - MUSCLE SPASMS [None]
  - HYPOAESTHESIA [None]
  - HAEMORRHAGE [None]
  - MIDDLE INSOMNIA [None]
  - DRUG INEFFECTIVE [None]
